FAERS Safety Report 19581423 (Version 2)
Quarter: 2021Q3

REPORT INFORMATION
  Report Type: Spontaneous
  Country: US (occurrence: US)
  Receive Date: 20210719
  Receipt Date: 20210802
  Transmission Date: 20211014
  Serious: Yes (Other)
  Sender: FDA-Public Use
  Company Number: US-ORGANON-O2107USA001270

PATIENT
  Age: 34 Year
  Sex: Female
  Weight: 112.93 kg

DRUGS (1)
  1. NEXPLANON [Suspect]
     Active Substance: ETONOGESTREL
     Indication: CONTRACEPTION
     Dosage: 68 MILLIGRAM ROD (1 ROD IN RIGHT ARM), ONCE
     Route: 059
     Dates: start: 20210617

REACTIONS (11)
  - Affect lability [Not Recovered/Not Resolved]
  - Mood swings [Unknown]
  - Anger [Unknown]
  - Device breakage [Not Recovered/Not Resolved]
  - Implant site pain [Not Recovered/Not Resolved]
  - Paraesthesia [Unknown]
  - Implant site bruising [Not Recovered/Not Resolved]
  - Product use issue [Unknown]
  - Device dislocation [Not Recovered/Not Resolved]
  - Depression [Unknown]
  - Hypoaesthesia [Unknown]

NARRATIVE: CASE EVENT DATE: 2021
